FAERS Safety Report 11386915 (Version 7)
Quarter: 2020Q4

REPORT INFORMATION
  Report Type: Spontaneous
  Country: US (occurrence: US)
  Receive Date: 20150817
  Receipt Date: 20201210
  Transmission Date: 20210113
  Serious: Yes (Other)
  Sender: FDA-Public Use
  Company Number: US-PFIZER INC-2015269851

PATIENT
  Age: 50 Year
  Sex: Female

DRUGS (1)
  1. LYRICA [Suspect]
     Active Substance: PREGABALIN
     Dosage: 450 MG, DAILY (ONE TABLET BY MOUTH SIX TIMES A DAY/ 75MGX6 = 540 FOR 3 MONTH SUPPLY)
     Route: 048

REACTIONS (5)
  - Migraine [Unknown]
  - Gait disturbance [Unknown]
  - Pain [Unknown]
  - Tremor [Unknown]
  - Seizure [Unknown]
